FAERS Safety Report 9735748 (Version 3)
Quarter: 2015Q3

REPORT INFORMATION
  Report Type: Spontaneous
  Country: US (occurrence: US)
  Receive Date: 20131206
  Receipt Date: 20150804
  Transmission Date: 20151125
  Serious: No
  Sender: FDA-Public Use
  Company Number: US-GILEAD-2009-0022642

PATIENT
  Age: 79 Year
  Sex: Male
  Weight: 68.49 kg

DRUGS (13)
  1. REVATIO [Concomitant]
     Active Substance: SILDENAFIL CITRATE
  2. ZIAC [Concomitant]
     Active Substance: BISOPROLOL FUMARATE\HYDROCHLOROTHIAZIDE
  3. LISINOPRIL. [Concomitant]
     Active Substance: LISINOPRIL
  4. PROTONIX [Concomitant]
     Active Substance: PANTOPRAZOLE SODIUM
  5. METFORMIN HCL [Concomitant]
     Active Substance: METFORMIN HYDROCHLORIDE
  6. ZYRTEC [Concomitant]
     Active Substance: CETIRIZINE HYDROCHLORIDE
  7. OXYGEN. [Concomitant]
     Active Substance: OXYGEN
  8. COMPLETE MULTIVITAMIN [Concomitant]
     Active Substance: VITAMINS
  9. SIMVASTATIN. [Concomitant]
     Active Substance: SIMVASTATIN
  10. NORVASC [Concomitant]
     Active Substance: AMLODIPINE BESYLATE
  11. LETAIRIS [Suspect]
     Active Substance: AMBRISENTAN
     Indication: PULMONARY ARTERIAL HYPERTENSION
     Route: 048
     Dates: start: 20090526
  12. ECOTRIN [Concomitant]
     Active Substance: ASPIRIN
  13. GLIPIZIDE. [Concomitant]
     Active Substance: GLIPIZIDE

REACTIONS (1)
  - Oedema [Unknown]
